FAERS Safety Report 20617264 (Version 2)
Quarter: 2022Q2

REPORT INFORMATION
  Report Type: Spontaneous
  Country: US (occurrence: US)
  Receive Date: 20220321
  Receipt Date: 20220614
  Transmission Date: 20220721
  Serious: Yes (Other)
  Sender: FDA-Public Use
  Company Number: US-PIRAMAL PHARMA LIMITED-2022-PEL-000106

PATIENT

DRUGS (1)
  1. GABLOFEN [Suspect]
     Active Substance: BACLOFEN
     Indication: Product used for unknown indication
     Dosage: 577.6 MCG/DAY
     Route: 037

REACTIONS (7)
  - Loss of consciousness [Recovered/Resolved]
  - Withdrawal syndrome [Unknown]
  - Overdose [Unknown]
  - Muscle spasticity [Unknown]
  - Malaise [Unknown]
  - Mental status changes [Unknown]
  - Hypotonia [Unknown]

NARRATIVE: CASE EVENT DATE: 20211101
